FAERS Safety Report 6296872-9 (Version None)
Quarter: 2009Q3

REPORT INFORMATION
  Report Type: 
  Country: None (occurrence: None)
  Receive Date: 20090724
  Receipt Date: 20090521
  Transmission Date: 20100115
  Serious: Yes (Death)
  Sender: FDA-Public Use
  Company Number: 2009BI015915

PATIENT
  Age: 35 Year
  Sex: Female

DRUGS (1)
  1. TYSABRI [Suspect]
     Indication: MULTIPLE SCLEROSIS
     Dosage: ;IV
     Route: 042
     Dates: start: 20050221, end: 20060401

REACTIONS (2)
  - COMPLETED SUICIDE [None]
  - DEPRESSION [None]
